FAERS Safety Report 5625549-5 (Version None)
Quarter: 2008Q1

REPORT INFORMATION
  Report Type: 
  Country: None (occurrence: None)
  Receive Date: 20080211
  Receipt Date: 20080211
  Transmission Date: 20080703
  Serious: No
  Sender: FDA-Public Use
  Company Number: None

PATIENT
  Age: 24 Year
  Sex: Male
  Weight: 127.0072 kg

DRUGS (1)
  1. CHANTIX [Suspect]
     Indication: SMOKING CESSATION THERAPY
     Dosage: 2X DAILY
     Dates: start: 20071123, end: 20071207

REACTIONS (2)
  - NO THERAPEUTIC RESPONSE [None]
  - SCHIZOAFFECTIVE DISORDER [None]
